FAERS Safety Report 11463109 (Version 3)
Quarter: 2015Q4

REPORT INFORMATION
  Report Type: Spontaneous
  Country: FR (occurrence: FR)
  Receive Date: 20150905
  Receipt Date: 20151019
  Transmission Date: 20160304
  Serious: Yes (Hospitalization)
  Sender: FDA-Public Use
  Company Number: FR-AUROBINDO-AUR-APL-2015-07746

PATIENT
  Age: 35 Year
  Sex: Male
  Weight: 93 kg

DRUGS (2)
  1. AMOXICILLIN ARROW FILM-COATED DISPERSIBLE TABLET [Suspect]
     Active Substance: AMOXICILLIN
     Indication: MALAISE
     Dosage: 1 G, ONCE A DAY
     Route: 048
     Dates: start: 20150826, end: 20150826
  2. DOLIPRANE [Concomitant]
     Active Substance: ACETAMINOPHEN
     Indication: PRODUCT USED FOR UNKNOWN INDICATION
     Dosage: 1 G, 3 TIMES A DAY
     Route: 048

REACTIONS (2)
  - Intentional product misuse [Unknown]
  - Angioedema [Recovered/Resolved]

NARRATIVE: CASE EVENT DATE: 20150826
